FAERS Safety Report 25155340 (Version 3)
Quarter: 2025Q3

REPORT INFORMATION
  Report Type: Report from Study
  Country: CA (occurrence: CA)
  Receive Date: 20250403
  Receipt Date: 20250930
  Transmission Date: 20251021
  Serious: Yes (Other)
  Sender: TAKEDA
  Company Number: CA-TAKEDA-2025TUS032428

PATIENT
  Age: 62 Year
  Sex: Female

DRUGS (12)
  1. VEDOLIZUMAB [Suspect]
     Active Substance: VEDOLIZUMAB
     Indication: Colitis ulcerative
  2. VEDOLIZUMAB [Suspect]
     Active Substance: VEDOLIZUMAB
     Indication: Crohn^s disease
  3. VEDOLIZUMAB [Suspect]
     Active Substance: VEDOLIZUMAB
  4. UCERIS [Concomitant]
     Active Substance: BUDESONIDE
     Dosage: 2 MILLIGRAM, QD
     Dates: start: 202402
  5. MESALAMINE [Concomitant]
     Active Substance: MESALAMINE
     Dosage: UNK UNK, QD
     Dates: start: 202312
  6. PREDNISONE [Concomitant]
     Active Substance: PREDNISONE
  7. HERBALS\TURMERIC [Concomitant]
     Active Substance: HERBALS\TURMERIC
  8. ALOE VERA LEAF [Concomitant]
     Active Substance: ALOE VERA LEAF
  9. TYLENOL [Concomitant]
     Active Substance: ACETAMINOPHEN
  10. METHIMAZOLE [Concomitant]
     Active Substance: METHIMAZOLE
     Dosage: UNK UNK, QD
     Dates: start: 20250807
  11. SELENIUM [Concomitant]
     Active Substance: SELENIUM
     Dosage: 200 MICROGRAM, QD
  12. VITAMIN D3 [Concomitant]
     Active Substance: CHOLECALCIFEROL
     Dosage: 2500 INTERNATIONAL UNIT, QD

REACTIONS (3)
  - Graves^ disease [Not Recovered/Not Resolved]
  - Defaecation urgency [Unknown]
  - Ocular hyperaemia [Unknown]
